FAERS Safety Report 7235301-5 (Version None)
Quarter: 2011Q1

REPORT INFORMATION
  Report Type: 
  Country: None (occurrence: None)
  Receive Date: 20110120
  Receipt Date: 20110112
  Transmission Date: 20110831
  Serious: Yes (Other)
  Sender: FDA-Public Use
  Company Number: CA-JNJFOC-20110103645

PATIENT
  Sex: Male
  Weight: 68.8 kg

DRUGS (3)
  1. METHOTREXATE [Concomitant]
     Route: 048
  2. PENTASA [Concomitant]
  3. REMICADE [Suspect]
     Indication: CROHN'S DISEASE
     Route: 042

REACTIONS (2)
  - DECREASED APPETITE [None]
  - INTESTINAL OBSTRUCTION [None]
